FAERS Safety Report 9919674 (Version 3)
Quarter: 2014Q3

REPORT INFORMATION
  Report Type: Spontaneous
  Country: US (occurrence: US)
  Receive Date: 20140224
  Receipt Date: 20140717
  Transmission Date: 20150326
  Serious: Yes (Other)
  Sender: FDA-Public Use
  Company Number: US-ABBVIE-14P-163-1204201-00

PATIENT
  Sex: Male
  Weight: 88.53 kg

DRUGS (4)
  1. ANDROGEL [Suspect]
     Active Substance: TESTOSTERONE
     Indication: BLOOD TESTOSTERONE DECREASED
     Dosage: UNKNOWN
     Dates: start: 2009, end: 2011
  2. SIMVASTATIN. [Concomitant]
     Active Substance: SIMVASTATIN
     Indication: PRODUCT USED FOR UNKNOWN INDICATION
  3. ANDROGEL [Suspect]
     Active Substance: TESTOSTERONE
     Indication: BLOOD TESTOSTERONE DECREASED
     Dosage: 2 PUMPS PER DAY
     Route: 061
     Dates: start: 2011
  4. SYNTHROID [Suspect]
     Active Substance: LEVOTHYROXINE SODIUM
     Indication: THYROID NEOPLASM
     Route: 048
     Dates: start: 201302

REACTIONS (8)
  - Cerebral hypoperfusion [Recovered/Resolved]
  - Tracheal disorder [Recovered/Resolved]
  - Erythema [Recovered/Resolved]
  - Vascular compression [Recovered/Resolved]
  - Dyspnoea [Recovered/Resolved]
  - Red blood cell count increased [Not Recovered/Not Resolved]
  - Thyroid neoplasm [Recovered/Resolved]
  - Polycythaemia [Unknown]

NARRATIVE: CASE EVENT DATE: 2013
